FAERS Safety Report 5492727-8 (Version None)
Quarter: 2007Q4

REPORT INFORMATION
  Report Type: 
  Country: None (occurrence: None)
  Receive Date: 20071023
  Receipt Date: 20071015
  Transmission Date: 20080405
  Serious: Yes (Hospitalization)
  Sender: FDA-Public Use
  Company Number: FR-WYE-G00471307

PATIENT
  Sex: Female

DRUGS (7)
  1. EFFEXOR XR [Suspect]
     Indication: DEPRESSION
     Dosage: 4 DOSE TOTAL DAILY
     Route: 048
  2. LEXOMIL [Suspect]
     Indication: ANXIETY
     Route: 048
     Dates: start: 20070605
  3. DOLIPRANE [Suspect]
     Indication: CANCER PAIN
     Dosage: ON DEMAND, 3 DOSE TOTAL DAILY
     Route: 048
     Dates: start: 20070604
  4. ACTISKENAN [Suspect]
     Indication: CANCER PAIN
     Dosage: 6 DOSE TOTAL DAILY
     Route: 048
     Dates: start: 20070604
  5. TENORMIN [Suspect]
     Indication: HYPERTENSION
     Dosage: 1 DOSE TOTAL DAILY
     Route: 048
  6. RISPERDAL [Suspect]
     Indication: PSYCHOTIC DISORDER
     Route: 048
     Dates: end: 20070604
  7. RISPERDAL [Suspect]
     Route: 048
     Dates: start: 20070605

REACTIONS (5)
  - BLOOD ALKALINE PHOSPHATASE INCREASED [None]
  - GAMMA-GLUTAMYLTRANSFERASE INCREASED [None]
  - PERITONEAL EFFUSION [None]
  - PLEURAL EFFUSION [None]
  - TRANSAMINASES INCREASED [None]
